FAERS Safety Report 9500568 (Version 1)
Quarter: 2013Q3

REPORT INFORMATION
  Report Type: Spontaneous
  Country: US (occurrence: US)
  Receive Date: 20130905
  Receipt Date: 20130905
  Transmission Date: 20140515
  Serious: Yes (Life-Threatening)
  Sender: FDA-Public Use
  Company Number: US-ROXANE LABORATORIES, INC.-2013-RO-01484RO

PATIENT
  Age: 44 Year
  Sex: Female

DRUGS (6)
  1. LITHIUM CARBONATE [Suspect]
     Indication: SCHIZOAFFECTIVE DISORDER
     Dosage: 1200 MG
     Dates: start: 2011, end: 201307
  2. LATUDA [Suspect]
     Indication: SCHIZOAFFECTIVE DISORDER
     Dosage: 40 MG
     Route: 048
     Dates: start: 20130625, end: 20130626
  3. GEODON [Suspect]
     Indication: SCHIZOAFFECTIVE DISORDER
     Dosage: 320 MG
     Dates: end: 20130624
  4. GEODON [Suspect]
     Dosage: 240 MG
     Dates: start: 20130625, end: 201307
  5. PROPRANOLOL [Concomitant]
  6. SAPHRIS [Concomitant]
     Dates: end: 2013

REACTIONS (4)
  - Cardiac arrest [Recovered/Resolved]
  - Tremor [Not Recovered/Not Resolved]
  - Cognitive disorder [Not Recovered/Not Resolved]
  - Memory impairment [Not Recovered/Not Resolved]
